FAERS Safety Report 22691140 (Version 3)
Quarter: 2024Q4

REPORT INFORMATION
  Report Type: Spontaneous
  Country: ZA (occurrence: ZA)
  Receive Date: 20230711
  Receipt Date: 20241004
  Transmission Date: 20250115
  Serious: Yes (Hospitalization, Other)
  Sender: PFIZER
  Company Number: ZA-PFIZER INC-PV202200124199

PATIENT
  Age: 48 Year
  Sex: Male
  Weight: 79 kg

DRUGS (6)
  1. XELJANZ [Suspect]
     Active Substance: TOFACITINIB CITRATE
     Indication: Colitis ulcerative
     Dosage: 10 MG, 2X/DAY (BOLUS DOSE)
     Route: 048
     Dates: start: 20221208
  2. XELJANZ [Suspect]
     Active Substance: TOFACITINIB CITRATE
     Dosage: 5 MG, 2X/DAY (MAINTENANCE DOSE)
     Route: 048
     Dates: start: 20230208, end: 2023
  3. XELJANZ [Suspect]
     Active Substance: TOFACITINIB CITRATE
     Dosage: 10 MG, 2X/DAY
     Route: 048
     Dates: start: 202303
  4. ASACOL [Concomitant]
     Active Substance: MESALAMINE
  5. AZATHIOPRINE [Concomitant]
     Active Substance: AZATHIOPRINE
  6. DIETARY SUPPLEMENT\PROBIOTICS [Concomitant]
     Active Substance: DIETARY SUPPLEMENT\PROBIOTICS NOS

REACTIONS (8)
  - Drug ineffective [Unknown]
  - Colitis ulcerative [Unknown]
  - Iron deficiency [Unknown]
  - Iron deficiency anaemia [Unknown]
  - Colitis [Unknown]
  - Nausea [Recovering/Resolving]
  - Increased appetite [Recovered/Resolved]
  - Condition aggravated [Unknown]

NARRATIVE: CASE EVENT DATE: 20230101
